FAERS Safety Report 19364186 (Version 1)
Quarter: 2021Q2

REPORT INFORMATION
  Report Type: Spontaneous
  Country: GB (occurrence: GB)
  Receive Date: 20210603
  Receipt Date: 20210603
  Transmission Date: 20210717
  Serious: Yes (Other)
  Sender: FDA-Public Use
  Company Number: NVSC2021GB119789

PATIENT
  Age: 63 Year
  Sex: Male
  Weight: 79 kg

DRUGS (1)
  1. VOLTAROL [Suspect]
     Active Substance: DICLOFENAC SODIUM
     Indication: PRODUCT USED FOR UNKNOWN INDICATION
     Dosage: UNK
     Route: 065

REACTIONS (8)
  - Arthralgia [Recovered/Resolved]
  - Oral pain [Recovering/Resolving]
  - Nausea [Recovered/Resolved]
  - Oral pain [Recovering/Resolving]
  - Nausea [Recovering/Resolving]
  - Myalgia [Recovered/Resolved]
  - Influenza [Recovered/Resolved]
  - Cold sweat [Recovering/Resolving]

NARRATIVE: CASE EVENT DATE: 20210513
